FAERS Safety Report 21004833 (Version 2)
Quarter: 2022Q3

REPORT INFORMATION
  Report Type: Spontaneous
  Country: GB (occurrence: None)
  Receive Date: 20220624
  Receipt Date: 20220705
  Transmission Date: 20221027
  Serious: Yes (Death, Other)
  Sender: FDA-Public Use
  Company Number: GB-ROCHE-3117146

PATIENT
  Age: 6 Year
  Sex: Female
  Weight: 29.1 kg

DRUGS (1)
  1. EVRYSDI [Suspect]
     Active Substance: RISDIPLAM
     Indication: Spinal muscular atrophy
     Route: 048
     Dates: start: 20201013

REACTIONS (6)
  - Cardio-respiratory arrest [Fatal]
  - Respiratory depression [Fatal]
  - Brain injury [Fatal]
  - Hypoxia [Unknown]
  - Status epilepticus [Unknown]
  - Head injury [Unknown]

NARRATIVE: CASE EVENT DATE: 20220401
